FAERS Safety Report 20326334 (Version 1)
Quarter: 2022Q1

REPORT INFORMATION
  Report Type: Spontaneous
  Country: US (occurrence: US)
  Receive Date: 20220112
  Receipt Date: 20220112
  Transmission Date: 20220424
  Serious: No
  Sender: FDA-Public Use
  Company Number: US-TEVA-2021-US-1993743

PATIENT
  Age: 67 Year
  Sex: Male
  Weight: 120.2 kg

DRUGS (2)
  1. ALBUTEROL SULFATE [Suspect]
     Active Substance: ALBUTEROL SULFATE
     Indication: Dyspnoea
     Dosage: 1-2 PUFFS AT LEAST TWICE A DAY
     Route: 065
  2. ALBUTEROL SULFATE [Suspect]
     Active Substance: ALBUTEROL SULFATE
     Indication: Chest discomfort

REACTIONS (3)
  - Anxiety [Unknown]
  - Extra dose administered [Unknown]
  - Product taste abnormal [Unknown]
